FAERS Safety Report 12397026 (Version 1)
Quarter: 2016Q2

REPORT INFORMATION
  Report Type: Spontaneous
  Country: US (occurrence: None)
  Receive Date: 20160523
  Receipt Date: 20160523
  Transmission Date: 20160815
  Serious: Yes (Other)
  Sender: FDA-Public Use
  Company Number: None

PATIENT
  Age: 31 Year
  Sex: Female
  Weight: 49.44 kg

DRUGS (1)
  1. GABAPENTIN. [Suspect]
     Active Substance: GABAPENTIN

REACTIONS (8)
  - Cough [None]
  - Hyperhidrosis [None]
  - Rash [None]
  - Feeling of body temperature change [None]
  - Affective disorder [None]
  - Crying [None]
  - Diarrhoea [None]
  - Suicidal ideation [None]

NARRATIVE: CASE EVENT DATE: 20160517
